FAERS Safety Report 4423672-4 (Version None)
Quarter: 2004Q3

REPORT INFORMATION
  Report Type: 
  Country: None (occurrence: None)
  Receive Date: 20040806
  Receipt Date: 20040727
  Transmission Date: 20050211
  Serious: Yes (Other)
  Sender: FDA-Public Use
  Company Number: 2004225891DE

PATIENT

DRUGS (4)
  1. CELEBREX [Suspect]
     Dosage: ORAL
     Route: 048
  2. THEOPHYLLINE [Concomitant]
  3. ASPIRIN [Concomitant]
  4. APROVEL (IRBESARTAN) [Concomitant]

REACTIONS (1)
  - MYOCARDITIS [None]
